FAERS Safety Report 5550363-9 (Version None)
Quarter: 2007Q4

REPORT INFORMATION
  Report Type: 
  Country: None (occurrence: None)
  Receive Date: 20071212
  Receipt Date: 20070430
  Transmission Date: 20080405
  Serious: No
  Sender: FDA-Public Use
  Company Number: US-AMGEN-KDL222270

PATIENT
  Sex: Male
  Weight: 86.3 kg

DRUGS (3)
  1. ENBREL [Suspect]
     Route: 058
     Dates: start: 20040101
  2. TOPAMAX [Concomitant]
  3. UNSPECIFIED MEDICATION [Concomitant]

REACTIONS (1)
  - PSORIATIC ARTHROPATHY [None]
